FAERS Safety Report 5912766-X (Version None)
Quarter: 2008Q4

REPORT INFORMATION
  Report Type: 
  Country: None (occurrence: None)
  Receive Date: 20081008
  Receipt Date: 20071102
  Transmission Date: 20090506
  Serious: No
  Sender: FDA-Public Use
  Company Number: US-ABBOTT-07P-163-0423971-00

PATIENT
  Sex: Female
  Weight: 31.099 kg

DRUGS (5)
  1. DEPAKOTE [Suspect]
     Indication: CONVULSION
     Route: 051
     Dates: end: 20070101
  2. DEPAKOTE [Suspect]
     Dates: start: 20070301
  3. LAMOTRIGINE [Suspect]
     Indication: CONVULSION
     Route: 051
     Dates: start: 20060101, end: 20060101
  4. TOPIRAMATE [Suspect]
     Indication: CONVULSION
     Route: 051
     Dates: start: 20070201, end: 20070301
  5. PHENOBARBITAL [Concomitant]
     Indication: CONVULSION
     Route: 051
     Dates: start: 19820101

REACTIONS (2)
  - CONVULSION [None]
  - VOMITING [None]
